FAERS Safety Report 5581543-4 (Version None)
Quarter: 2008Q1

REPORT INFORMATION
  Report Type: 
  Country: None (occurrence: None)
  Receive Date: 20080102
  Receipt Date: 20080102
  Transmission Date: 20080703
  Serious: No
  Sender: FDA-Public Use
  Company Number: None

PATIENT
  Age: 80 Year
  Sex: Female
  Weight: 45.3597 kg

DRUGS (1)
  1. PROVENTIL [Suspect]
     Indication: EMPHYSEMA
     Dosage: ONE DOSE ONCE PO
     Route: 048

REACTIONS (1)
  - MALAISE [None]
